FAERS Safety Report 5677164-5 (Version None)
Quarter: 2008Q1

REPORT INFORMATION
  Report Type: 
  Country: None (occurrence: None)
  Receive Date: 20080324
  Receipt Date: 20080317
  Transmission Date: 20080703
  Serious: Yes (Other)
  Sender: FDA-Public Use
  Company Number: B0510163A

PATIENT
  Age: 15 Year

DRUGS (8)
  1. MELPHALAN [Suspect]
     Indication: ACUTE MYELOID LEUKAEMIA
     Dosage: 70MGM2 PER DAY
     Route: 065
  2. STEM CELL TRANSPLANT [Concomitant]
  3. ETOPOSIDE [Concomitant]
     Indication: ACUTE MYELOID LEUKAEMIA
  4. CYTARABINE [Concomitant]
     Indication: ACUTE MYELOID LEUKAEMIA
  5. TOTAL BODY IRRADIATION [Concomitant]
     Indication: ACUTE MYELOID LEUKAEMIA
     Dosage: 12GY PER DAY
  6. THIOTEPA [Concomitant]
     Indication: ACUTE MYELOID LEUKAEMIA
     Dosage: 300MGM2 PER DAY
  7. CYCLOPHOSPHAMIDE [Concomitant]
     Indication: ACUTE MYELOID LEUKAEMIA
     Dosage: 120MGK PER DAY
  8. TACROLIMUS [Concomitant]
     Indication: PROPHYLAXIS AGAINST GRAFT VERSUS HOST DISEASE

REACTIONS (3)
  - ADENOVIRUS INFECTION [None]
  - ANAEMIA [None]
  - CYSTITIS HAEMORRHAGIC [None]
